FAERS Safety Report 20374350 (Version 1)
Quarter: 2022Q1

REPORT INFORMATION
  Report Type: Spontaneous
  Country: US (occurrence: US)
  Receive Date: 20220125
  Receipt Date: 20220125
  Transmission Date: 20220423
  Serious: No
  Sender: FDA-Public Use
  Company Number: US-drreddys-SPO/USA/22/0145980

PATIENT
  Age: 12 Year
  Sex: Male

DRUGS (1)
  1. ZENATANE [Suspect]
     Active Substance: ISOTRETINOIN
     Indication: Product used for unknown indication
     Dosage: RMA ISSUE DATE: 01/NOVEMBER/2021 12:00:00 AM, 09/DECEMBER/2021 12:00:00 AM, 07/JANUARY/2022 09:02:08

REACTIONS (1)
  - Arthralgia [Unknown]
